FAERS Safety Report 6836185-7 (Version None)
Quarter: 2010Q3

REPORT INFORMATION
  Report Type: 
  Country: None (occurrence: None)
  Receive Date: 20100713
  Receipt Date: 20100706
  Transmission Date: 20110219
  Serious: Yes (Death, Life-Threatening)
  Sender: FDA-Public Use
  Company Number: JP-ROCHE-714454

PATIENT
  Sex: Male

DRUGS (7)
  1. AVASTIN [Suspect]
     Indication: LUNG ADENOCARCINOMA METASTATIC
     Route: 041
     Dates: start: 20100612, end: 20100612
  2. OMEPRAL [Concomitant]
     Route: 048
     Dates: start: 20100513, end: 20100616
  3. MAGLAX [Concomitant]
     Route: 048
     Dates: start: 20100513, end: 20100616
  4. PANTETHINE [Concomitant]
     Dosage: DOSE FORM:MINUTE GRAIN.
     Route: 048
     Dates: start: 20100513, end: 20100616
  5. SENNOSIDE [Concomitant]
     Route: 048
     Dates: start: 20100513, end: 20100616
  6. PANVITAN [Concomitant]
     Dosage: DOSE FORM:POWDERED MEDICINE
     Route: 048
     Dates: start: 20100601, end: 20100616
  7. OXYCONTIN [Concomitant]
     Route: 048
     Dates: start: 20100516, end: 20100616

REACTIONS (2)
  - DISEASE PROGRESSION [None]
  - MITRAL VALVE PROLAPSE [None]
